FAERS Safety Report 4676393-7 (Version None)
Quarter: 2005Q2

REPORT INFORMATION
  Report Type: 
  Country: None (occurrence: None)
  Receive Date: 20050527
  Receipt Date: 20050303
  Transmission Date: 20051028
  Serious: Yes (Hospitalization)
  Sender: FDA-Public Use
  Company Number: US-GLAXOSMITHKLINE-A0548230A

PATIENT
  Sex: Female

DRUGS (3)
  1. WELLBUTRIN [Suspect]
     Dosage: 150MG PER DAY
     Dates: start: 20050301
  2. PAXIL [Concomitant]
  3. TOPAMAX [Concomitant]

REACTIONS (1)
  - MUSCULOSKELETAL CHEST PAIN [None]
